FAERS Safety Report 23744838 (Version 2)
Quarter: 2024Q2

REPORT INFORMATION
  Report Type: Spontaneous
  Country: JP (occurrence: JP)
  Receive Date: 20240415
  Receipt Date: 20240425
  Transmission Date: 20240715
  Serious: Yes (Death)
  Sender: FDA-Public Use
  Company Number: JP-MTPC-MTPC2024-0002978

PATIENT
  Age: 67 Year
  Sex: Female

DRUGS (9)
  1. EDARAVONE [Suspect]
     Active Substance: EDARAVONE
     Indication: Amyotrophic lateral sclerosis
     Dosage: 5 MILLILITER, QD
     Route: 048
     Dates: start: 20230530, end: 20240322
  2. EDARAVONE [Suspect]
     Active Substance: EDARAVONE
     Indication: Amyotrophic lateral sclerosis
     Dosage: 5 MILLILITER, QD
     Route: 048
     Dates: start: 20230530, end: 20240322
  3. DAYVIGO [Concomitant]
     Active Substance: LEMBOREXANT
     Indication: Insomnia
     Dosage: 5 MILLIGRAM, QD
     Route: 048
     Dates: start: 20230921, end: 20240327
  4. LYRICA [Concomitant]
     Active Substance: PREGABALIN
     Indication: Neuralgia
     Dosage: 125 MILLIGRAM, QD
     Route: 048
     Dates: start: 20231018, end: 20240327
  5. METHYLCOBALAMIN [Concomitant]
     Active Substance: METHYLCOBALAMIN
     Indication: Neuralgia
     Dosage: 1.5 MILLIGRAM, QD
     Route: 048
     Dates: end: 20240327
  6. MORPHINE HYDROCHLORIDE [Concomitant]
     Active Substance: MORPHINE HYDROCHLORIDE
     Indication: Amyotrophic lateral sclerosis
     Dosage: 30 MILLIGRAM, QD
     Route: 048
     Dates: start: 20240222, end: 20240327
  7. RILUTEK [Concomitant]
     Active Substance: RILUZOLE
     Indication: Amyotrophic lateral sclerosis
     Dosage: 100 MILLIGRAM, QD
     Route: 048
     Dates: end: 20240221
  8. SYMPROIC [Concomitant]
     Active Substance: NALDEMEDINE
     Indication: Constipation
     Dosage: 0.2 MILLIGRAM, QD
     Route: 048
     Dates: start: 20240222, end: 20240327
  9. TULOBUTEROL [Concomitant]
     Active Substance: TULOBUTEROL
     Indication: Bronchitis chronic
     Dosage: 2 MILLIGRAM, QD
     Dates: start: 20230824, end: 20240327

REACTIONS (3)
  - Death [Fatal]
  - Abnormal faeces [Unknown]
  - Urine odour abnormal [Unknown]

NARRATIVE: CASE EVENT DATE: 20240327
